FAERS Safety Report 16252200 (Version 1)
Quarter: 2019Q2

REPORT INFORMATION
  Report Type: Report from Study
  Country: GB (occurrence: GB)
  Receive Date: 20190429
  Receipt Date: 20190429
  Transmission Date: 20190711
  Serious: Yes (Hospitalization, Other)
  Sender: FDA-Public Use
  Company Number: GB-JNJFOC-20181100446

PATIENT
  Age: 76 Year
  Sex: Male
  Weight: 91 kg

DRUGS (2)
  1. MEMANTINE. [Concomitant]
     Active Substance: MEMANTINE
     Route: 065
  2. STELARA [Suspect]
     Active Substance: USTEKINUMAB
     Indication: PSORIASIS
     Route: 058
     Dates: start: 2013

REACTIONS (9)
  - Product dose omission [Unknown]
  - Retinal operation [Unknown]
  - Intraocular lens implant [Unknown]
  - Furuncle [Recovered/Resolved]
  - Amblyopia [Unknown]
  - Cataract [Unknown]
  - Hernia [Not Recovered/Not Resolved]
  - Psoriasis [Unknown]
  - Cyst [Unknown]

NARRATIVE: CASE EVENT DATE: 2017
